FAERS Safety Report 16964205 (Version 1)
Quarter: 2019Q4

REPORT INFORMATION
  Report Type: Spontaneous
  Country: US (occurrence: US)
  Receive Date: 20190909
  Receipt Date: 20190909
  Transmission Date: 20200122
  Serious: Yes (Hospitalization)
  Sender: FDA-Public Use
  Company Number: None

PATIENT
  Age: 64 Year
  Sex: Female
  Weight: 30.39 kg

DRUGS (1)
  1. APIXABAN [Suspect]
     Active Substance: APIXABAN
     Indication: DEEP VEIN THROMBOSIS
     Dosage: ?          OTHER DOSE:2.5 OR 5.0MG;?
     Route: 048
     Dates: start: 20181227

REACTIONS (9)
  - Hypocalcaemia [None]
  - Haematuria [None]
  - Ileus [None]
  - Cholecystitis [None]
  - Hypoalbuminaemia [None]
  - Obstructive pancreatitis [None]
  - Gallbladder enlargement [None]
  - Proteinuria [None]
  - Hypokalaemia [None]

NARRATIVE: CASE EVENT DATE: 20190906
